FAERS Safety Report 7289933-9 (Version None)
Quarter: 2011Q1

REPORT INFORMATION
  Report Type: 
  Country: None (occurrence: None)
  Receive Date: 20110214
  Receipt Date: 20110201
  Transmission Date: 20110831
  Serious: Yes (Other)
  Sender: FDA-Public Use
  Company Number: BR-AMGEN-BRACT2010010519

PATIENT
  Age: 50 Year
  Sex: Female
  Weight: 82 kg

DRUGS (5)
  1. ETANERCEPT [Suspect]
     Indication: PSORIATIC ARTHROPATHY
     Dosage: 50 MG, QWK
     Route: 058
     Dates: start: 20091106, end: 20100618
  2. LANTUS [Concomitant]
     Indication: TYPE 2 DIABETES MELLITUS
     Dosage: UNK
  3. METFORMIN HYDROCHLORIDE [Concomitant]
     Indication: DIABETES MELLITUS
     Dosage: UNK
  4. ETANERCEPT [Suspect]
     Indication: PSORIASIS
  5. AVANDAMET [Concomitant]
     Indication: TYPE 2 DIABETES MELLITUS
     Dosage: UNK

REACTIONS (6)
  - HYPERSENSITIVITY [None]
  - CELLULITIS [None]
  - SWELLING FACE [None]
  - TOOTH INFECTION [None]
  - ALOPECIA [None]
  - TOOTH EXTRACTION [None]
